FAERS Safety Report 8486982-X (Version None)
Quarter: 2012Q3

REPORT INFORMATION
  Report Type: 
  Country: None (occurrence: None)
  Receive Date: 20120704
  Receipt Date: 20120627
  Transmission Date: 20120928
  Serious: Yes (Hospitalization, Other)
  Sender: FDA-Public Use
  Company Number: PHHY2012AU045774

PATIENT
  Sex: Male
  Weight: 108.9 kg

DRUGS (1)
  1. CLOZARIL [Suspect]
     Indication: SCHIZOPHRENIA, PARANOID TYPE
     Dates: start: 20100807

REACTIONS (11)
  - EJECTION FRACTION DECREASED [None]
  - CARDIAC ANEURYSM [None]
  - ELECTROCARDIOGRAM ABNORMAL [None]
  - MYOCARDIAL ISCHAEMIA [None]
  - CARDIAC DISORDER [None]
  - DILATATION VENTRICULAR [None]
  - LEFT VENTRICULAR DYSFUNCTION [None]
  - MENTAL DISORDER [None]
  - HYPOTENSION [None]
  - ATRIAL SEPTAL DEFECT [None]
  - LEFT ATRIAL DILATATION [None]
